FAERS Safety Report 5603571-2 (Version None)
Quarter: 2008Q1

REPORT INFORMATION
  Report Type: 
  Country: None (occurrence: None)
  Receive Date: 20080111
  Receipt Date: 20070709
  Transmission Date: 20080703
  Serious: Yes (Other)
  Sender: FDA-Public Use
  Company Number: HQWYE888306JUL04

PATIENT
  Age: 58 Year
  Sex: Female

DRUGS (2)
  1. PREMPRO [Suspect]
     Indication: HORMONE REPLACEMENT THERAPY
     Dosage: ORAL
     Route: 048
     Dates: start: 19990201, end: 20020719
  2. PREMARIN [Suspect]
     Indication: OESTROGEN REPLACEMENT THERAPY

REACTIONS (1)
  - PULMONARY EMBOLISM [None]
